FAERS Safety Report 10405707 (Version 1)
Quarter: 2014Q3

REPORT INFORMATION
  Report Type: Not Available
  Country: US (occurrence: US)
  Receive Date: 20140825
  Receipt Date: 20140825
  Transmission Date: 20150326
  Serious: No
  Sender: FDA-Public Use
  Company Number: US-LUPIN PHARMACEUTICALS INC.-E2B_00002308

PATIENT
  Age: 22 Year
  Sex: Male
  Weight: 72.64 kg

DRUGS (1)
  1. DULOXETINE DELAYED-RELEASE 20 MG CAPSULES USP [Suspect]
     Active Substance: DULOXETINE
     Indication: SEASONAL AFFECTIVE DISORDER
     Dates: start: 20140708

REACTIONS (3)
  - Product substitution issue [Not Recovered/Not Resolved]
  - Heart rate abnormal [Not Recovered/Not Resolved]
  - Anxiety [Not Recovered/Not Resolved]

NARRATIVE: CASE EVENT DATE: 20140710
